FAERS Safety Report 8519828-1 (Version None)
Quarter: 2012Q3

REPORT INFORMATION
  Report Type: 
  Country: None (occurrence: None)
  Receive Date: 20120719
  Receipt Date: 20120711
  Transmission Date: 20120928
  Serious: No
  Sender: FDA-Public Use
  Company Number: US-BIOGENIDEC-2012BI024955

PATIENT
  Sex: Female

DRUGS (1)
  1. TYSABRI [Suspect]
     Indication: MULTIPLE SCLEROSIS
     Route: 042
     Dates: start: 20110309

REACTIONS (6)
  - BLOOD IRON DECREASED [None]
  - WEIGHT INCREASED [None]
  - ANGER [None]
  - MOBILITY DECREASED [None]
  - MENOPAUSAL SYMPTOMS [None]
  - COGNITIVE DISORDER [None]
